FAERS Safety Report 4503604-0 (Version None)
Quarter: 2004Q4

REPORT INFORMATION
  Report Type: 
  Country: None (occurrence: None)
  Receive Date: 20041112
  Receipt Date: 20041102
  Transmission Date: 20050328
  Serious: Yes (Death, Other)
  Sender: FDA-Public Use
  Company Number: 2004211320GB

PATIENT
  Age: 79 Year
  Sex: Female
  Weight: 76 kg

DRUGS (9)
  1. BEXTRA [Suspect]
     Indication: BACK PAIN
     Dosage: 20 MG, QD, ORAL
     Route: 048
     Dates: start: 20040212, end: 20040330
  2. AMLODIPINE [Concomitant]
  3. BENDROFLUAZIDE [Concomitant]
  4. DICLOFENAC [Concomitant]
  5. ETORICOXIB [Concomitant]
  6. NIFEDIPINE [Concomitant]
  7. PREDNISOLONE [Concomitant]
  8. ACETYLSALICYLIC ACID [Concomitant]
  9. PARACETAMOL [Concomitant]

REACTIONS (21)
  - AORTIC ATHEROSCLEROSIS [None]
  - CIRCULATORY COLLAPSE [None]
  - CONTUSION [None]
  - DIARRHOEA [None]
  - DYSPNOEA [None]
  - EYE SWELLING [None]
  - GASTROINTESTINAL STROMAL TUMOUR [None]
  - HEPATIC CONGESTION [None]
  - LARYNGEAL OEDEMA [None]
  - LIVER DISORDER [None]
  - LOCAL SWELLING [None]
  - PHOTOSENSITIVITY REACTION [None]
  - PULMONARY CONGESTION [None]
  - PULMONARY OEDEMA [None]
  - RASH [None]
  - RASH MACULAR [None]
  - RENAL DISORDER [None]
  - SKIN LACERATION [None]
  - SUDDEN DEATH [None]
  - SWELLING FACE [None]
  - VOMITING [None]
